FAERS Safety Report 5034681-9 (Version None)
Quarter: 2006Q2

REPORT INFORMATION
  Report Type: 
  Country: None (occurrence: None)
  Receive Date: 20060621
  Receipt Date: 20060612
  Transmission Date: 20061013
  Serious: Yes (Hospitalization)
  Sender: FDA-Public Use
  Company Number: E2090-00024-SPO-JP

PATIENT
  Age: 63 Year
  Sex: Male

DRUGS (2)
  1. ZONISAMIDE [Suspect]
     Indication: EPILEPSY
     Dosage: 200 MG, 2 IN 1 D, ORAL
     Route: 048
     Dates: start: 20040303, end: 20040329
  2. VALPROATE SODIUM [Concomitant]

REACTIONS (4)
  - INFECTION [None]
  - PRURITUS [None]
  - RASH GENERALISED [None]
  - THERAPY NON-RESPONDER [None]
